FAERS Safety Report 7775561-5 (Version None)
Quarter: 2011Q3

REPORT INFORMATION
  Report Type: 
  Country: None (occurrence: None)
  Receive Date: 20110923
  Receipt Date: 20110920
  Transmission Date: 20111222
  Serious: Yes (Other)
  Sender: FDA-Public Use
  Company Number: SA-ROXANE LABORATORIES, INC.-2011-RO-01323RO

PATIENT
  Age: 22 Year
  Sex: Male

DRUGS (8)
  1. RIBAVIRIN [Suspect]
     Indication: HEPATITIS C
     Dosage: 1200 MG
     Route: 048
  2. PEGINTERFERON ALFA-2A [Suspect]
     Route: 058
  3. DEXAMETHASONE [Suspect]
     Indication: ACUTE LYMPHOCYTIC LEUKAEMIA
  4. HYPOGLYCEMIC AGENT [Concomitant]
     Indication: DIABETES MELLITUS
     Route: 048
  5. METHOTREXATE [Suspect]
     Indication: ACUTE LYMPHOCYTIC LEUKAEMIA
  6. MERCAPTOPURINE [Suspect]
     Indication: ACUTE LYMPHOCYTIC LEUKAEMIA
  7. VINCRISTINE [Suspect]
     Indication: ACUTE LYMPHOCYTIC LEUKAEMIA
  8. PEGINTERFERON ALFA-2A [Suspect]
     Indication: HEPATITIS C
     Route: 058

REACTIONS (3)
  - NEUTROPENIA [None]
  - SEPSIS [None]
  - HEPATITIS C [None]
